FAERS Safety Report 23821492 (Version 1)
Quarter: 2024Q2

REPORT INFORMATION
  Report Type: Spontaneous
  Country: US (occurrence: US)
  Receive Date: 20240506
  Receipt Date: 20240506
  Transmission Date: 20240715
  Serious: No
  Sender: FDA-Public Use
  Company Number: US-JNJFOC-20240428561

PATIENT
  Age: 53 Year
  Sex: Male

DRUGS (1)
  1. MENS ROGAINE EXTRA STRENGTH [Suspect]
     Active Substance: MINOXIDIL
     Indication: Alopecia
     Dosage: HALF A CAP
     Route: 061
     Dates: start: 2024, end: 2024

REACTIONS (6)
  - Arthralgia [Recovering/Resolving]
  - Application site irritation [Recovering/Resolving]
  - Application site inflammation [Recovering/Resolving]
  - Application site rash [Recovering/Resolving]
  - Inappropriate schedule of product administration [Unknown]
  - Underdose [Unknown]

NARRATIVE: CASE EVENT DATE: 20240101
